FAERS Safety Report 23569044 (Version 1)
Quarter: 2024Q1

REPORT INFORMATION
  Report Type: Report from Study
  Country: US (occurrence: US)
  Receive Date: 20240227
  Receipt Date: 20240227
  Transmission Date: 20240409
  Serious: Yes (Hospitalization)
  Sender: FDA-Public Use
  Company Number: US-TAKEDA-US201619218

PATIENT
  Sex: Male
  Weight: 79.365 kg

DRUGS (17)
  1. TEDUGLUTIDE [Suspect]
     Active Substance: TEDUGLUTIDE
     Indication: Short-bowel syndrome
     Dosage: UNK
     Route: 058
     Dates: start: 20161031, end: 20161031
  2. TEDUGLUTIDE [Suspect]
     Active Substance: TEDUGLUTIDE
     Indication: Short-bowel syndrome
     Dosage: UNK
     Route: 058
     Dates: start: 20161031, end: 20161031
  3. TEDUGLUTIDE [Suspect]
     Active Substance: TEDUGLUTIDE
     Indication: Short-bowel syndrome
     Dosage: UNK
     Route: 058
     Dates: start: 20161031, end: 20161031
  4. TEDUGLUTIDE [Suspect]
     Active Substance: TEDUGLUTIDE
     Indication: Short-bowel syndrome
     Dosage: UNK
     Route: 058
     Dates: start: 20161031, end: 20161031
  5. TEDUGLUTIDE [Suspect]
     Active Substance: TEDUGLUTIDE
     Indication: Crohn^s disease
     Dosage: 1.9 MILLIGRAM, QD
     Route: 058
     Dates: end: 2020
  6. TEDUGLUTIDE [Suspect]
     Active Substance: TEDUGLUTIDE
     Indication: Crohn^s disease
     Dosage: 1.9 MILLIGRAM, QD
     Route: 058
     Dates: end: 2020
  7. TEDUGLUTIDE [Suspect]
     Active Substance: TEDUGLUTIDE
     Indication: Crohn^s disease
     Dosage: 1.9 MILLIGRAM, QD
     Route: 058
     Dates: end: 2020
  8. TEDUGLUTIDE [Suspect]
     Active Substance: TEDUGLUTIDE
     Indication: Crohn^s disease
     Dosage: 1.9 MILLIGRAM, QD
     Route: 058
     Dates: end: 2020
  9. TEDUGLUTIDE [Suspect]
     Active Substance: TEDUGLUTIDE
     Dosage: 2.5 MILLIGRAM, QD
     Route: 058
     Dates: start: 2020
  10. TEDUGLUTIDE [Suspect]
     Active Substance: TEDUGLUTIDE
     Dosage: 2.5 MILLIGRAM, QD
     Route: 058
     Dates: start: 2020
  11. TEDUGLUTIDE [Suspect]
     Active Substance: TEDUGLUTIDE
     Dosage: 2.5 MILLIGRAM, QD
     Route: 058
     Dates: start: 2020
  12. TEDUGLUTIDE [Suspect]
     Active Substance: TEDUGLUTIDE
     Dosage: 2.5 MILLIGRAM, QD
     Route: 058
     Dates: start: 2020
  13. TEDUGLUTIDE [Suspect]
     Active Substance: TEDUGLUTIDE
     Dosage: 4 MILLIGRAM, QD
     Route: 058
  14. TEDUGLUTIDE [Suspect]
     Active Substance: TEDUGLUTIDE
     Dosage: 4 MILLIGRAM, QD
     Route: 058
  15. TEDUGLUTIDE [Suspect]
     Active Substance: TEDUGLUTIDE
     Dosage: 4 MILLIGRAM, QD
     Route: 058
  16. TEDUGLUTIDE [Suspect]
     Active Substance: TEDUGLUTIDE
     Dosage: 4 MILLIGRAM, QD
     Route: 058
  17. HUMIRA [Concomitant]
     Active Substance: ADALIMUMAB
     Dosage: UNK
     Route: 065

REACTIONS (4)
  - Hospitalisation [Unknown]
  - Obstruction [Not Recovered/Not Resolved]
  - Weight increased [Not Recovered/Not Resolved]
  - Off label use [Not Recovered/Not Resolved]
